FAERS Safety Report 4882153-4 (Version None)
Quarter: 2006Q1

REPORT INFORMATION
  Report Type: 
  Country: None (occurrence: None)
  Receive Date: 20060117
  Receipt Date: 20050930
  Transmission Date: 20060701
  Serious: Yes (Hospitalization, Other)
  Sender: FDA-Public Use
  Company Number: US-MERCK-0510USA00971

PATIENT
  Age: 37 Year
  Sex: Female
  Weight: 136 kg

DRUGS (4)
  1. VIOXX [Suspect]
     Indication: ARTHRALGIA
     Route: 048
     Dates: start: 20010223, end: 20021001
  2. VIOXX [Suspect]
     Route: 048
     Dates: start: 20010223, end: 20021001
  3. VIOXX [Suspect]
     Indication: LYME DISEASE
     Route: 048
     Dates: start: 20010223, end: 20021001
  4. VIOXX [Suspect]
     Route: 048
     Dates: start: 20010223, end: 20021001

REACTIONS (14)
  - AFFECTIVE DISORDER [None]
  - ANGINA PECTORIS [None]
  - ARRHYTHMIA [None]
  - BRONCHITIS [None]
  - CEREBROVASCULAR ACCIDENT [None]
  - CHEST PAIN [None]
  - CHRONIC OBSTRUCTIVE PULMONARY DISEASE [None]
  - DEPRESSION [None]
  - MYOCARDIAL INFARCTION [None]
  - ORGAN FAILURE [None]
  - OVERDOSE [None]
  - PAIN [None]
  - PULMONARY EMBOLISM [None]
  - VASCULAR INJURY [None]
